FAERS Safety Report 4444957-1 (Version None)
Quarter: 2004Q3

REPORT INFORMATION
  Report Type: 
  Country: None (occurrence: None)
  Receive Date: 20040909
  Receipt Date: 20040831
  Transmission Date: 20050211
  Serious: Yes (Death)
  Sender: FDA-Public Use
  Company Number: PHFR2004GB03353

PATIENT
  Age: 21 Year
  Sex: Male
  Weight: 57 kg

DRUGS (2)
  1. CARBAMAZEPINE [Suspect]
     Indication: EPILEPSY
     Dosage: 200 MG/DAY
     Route: 048
     Dates: start: 20040301
  2. LAMOTRIGINE [Suspect]
     Indication: EPILEPSY
     Dosage: 100 MG/DAY
     Route: 048
     Dates: start: 20040301

REACTIONS (2)
  - EPILEPSY [None]
  - SUDDEN DEATH [None]
